FAERS Safety Report 5949405-8 (Version None)
Quarter: 2008Q4

REPORT INFORMATION
  Report Type: 
  Country: None (occurrence: None)
  Receive Date: 20081112
  Receipt Date: 20081030
  Transmission Date: 20090506
  Serious: Yes (Hospitalization, Other)
  Sender: FDA-Public Use
  Company Number: PHHY2008JP26744

PATIENT
  Age: 54 Year
  Sex: Female

DRUGS (3)
  1. LOCHOL [Suspect]
     Indication: DYSLIPIDAEMIA
     Dosage: 30 MG/DAY
     Route: 048
     Dates: start: 20080922
  2. PAXIL [Concomitant]
     Dosage: 20 MG
     Route: 048
     Dates: start: 20080724
  3. BUFFERIN [Concomitant]
     Dosage: UNK
     Route: 048
     Dates: start: 20081022

REACTIONS (5)
  - ALTERED STATE OF CONSCIOUSNESS [None]
  - BLOOD CREATINE PHOSPHOKINASE INCREASED [None]
  - CONCUSSION [None]
  - FALL [None]
  - HEADACHE [None]
